FAERS Safety Report 8205901-4 (Version None)
Quarter: 2012Q1

REPORT INFORMATION
  Report Type: 
  Country: None (occurrence: None)
  Receive Date: 20120313
  Receipt Date: 20120305
  Transmission Date: 20120608
  Serious: Yes (Hospitalization, Other)
  Sender: FDA-Public Use
  Company Number: PHHY2012AU019454

PATIENT
  Age: 16 Year
  Sex: Male

DRUGS (2)
  1. SERTRALINE HYDROCHLORIDE [Suspect]
     Indication: EMOTIONAL DISTRESS
     Dosage: 20 MG, QD
  2. SERTRALINE HYDROCHLORIDE [Suspect]
     Indication: DEPRESSION
     Dosage: 60 MG, QD

REACTIONS (17)
  - AMNESIA [None]
  - AKATHISIA [None]
  - AGGRESSION [None]
  - AGITATION [None]
  - HOMICIDE [None]
  - SELF-INJURIOUS IDEATION [None]
  - ANXIETY [None]
  - TREMOR [None]
  - THINKING ABNORMAL [None]
  - VIOLENCE-RELATED SYMPTOM [None]
  - PALPITATIONS [None]
  - INTENTIONAL SELF-INJURY [None]
  - OBSESSIVE-COMPULSIVE DISORDER [None]
  - IMPULSIVE BEHAVIOUR [None]
  - RESTLESSNESS [None]
  - FEELING ABNORMAL [None]
  - SUICIDE ATTEMPT [None]
